FAERS Safety Report 8574761-4 (Version None)
Quarter: 2012Q3

REPORT INFORMATION
  Report Type: 
  Country: None (occurrence: None)
  Receive Date: 20120807
  Receipt Date: 20120726
  Transmission Date: 20120928
  Serious: Yes (Other)
  Sender: FDA-Public Use
  Company Number: US-009507513-2012SP026642

PATIENT

DRUGS (3)
  1. PEGASYS [Suspect]
     Dosage: 180 MG, QW
     Route: 058
  2. VICTRELIS [Suspect]
     Dosage: 800 MG, TID
     Route: 048
  3. REBETOL [Suspect]
     Dosage: 600 MG IN MORNING AND 400 MG IN EVENING
     Route: 048

REACTIONS (5)
  - ANAEMIA [None]
  - WHITE BLOOD CELL COUNT DECREASED [None]
  - HAEMATOCRIT DECREASED [None]
  - HAEMOGLOBIN DECREASED [None]
  - NEUTROPHIL COUNT DECREASED [None]
